FAERS Safety Report 9006677 (Version 1)
Quarter: 2013Q1

REPORT INFORMATION
  Report Type: Spontaneous
  Country: US (occurrence: US)
  Receive Date: 20130110
  Receipt Date: 20130110
  Transmission Date: 20140127
  Serious: Yes (Death)
  Sender: FDA-Public Use
  Company Number: US-PFIZER INC-2013007057

PATIENT
  Age: 43 Year
  Sex: Female

DRUGS (4)
  1. HALOPERIDOL [Suspect]
     Dosage: UNK
  2. AMITRIPTYLINE [Suspect]
     Dosage: UNK
  3. LISINOPRIL [Suspect]
     Dosage: UNK
  4. CITALOPRAM [Suspect]
     Dosage: UNK

REACTIONS (1)
  - Completed suicide [Fatal]
